FAERS Safety Report 24614686 (Version 4)
Quarter: 2024Q4

REPORT INFORMATION
  Report Type: Spontaneous
  Country: US (occurrence: US)
  Receive Date: 20241113
  Receipt Date: 20241231
  Transmission Date: 20250115
  Serious: Yes (Hospitalization, Other)
  Sender: PFIZER
  Company Number: US-PFIZER INC-202400300761

PATIENT
  Age: 56 Year
  Sex: Female

DRUGS (3)
  1. XELJANZ XR [Suspect]
     Active Substance: TOFACITINIB CITRATE
     Indication: Rheumatoid arthritis
     Dosage: 11 MG
     Dates: start: 202402
  2. XELJANZ XR [Suspect]
     Active Substance: TOFACITINIB CITRATE
     Dosage: 11 MG
     Dates: start: 202411, end: 202411
  3. XELJANZ XR [Suspect]
     Active Substance: TOFACITINIB CITRATE
     Dosage: 11 MG
     Dates: start: 202411

REACTIONS (11)
  - Surgery [Unknown]
  - Infection [Not Recovered/Not Resolved]
  - Ear pain [Not Recovered/Not Resolved]
  - Malaise [Unknown]
  - Headache [Unknown]
  - Asthma [Unknown]
  - Osteoporosis [Unknown]
  - Fibromyalgia [Unknown]
  - Chronic obstructive pulmonary disease [Unknown]
  - Folliculitis [Unknown]
  - Pain in extremity [Unknown]

NARRATIVE: CASE EVENT DATE: 20240601
